FAERS Safety Report 11500557 (Version 1)
Quarter: 2015Q3

REPORT INFORMATION
  Report Type: Spontaneous
  Country: US (occurrence: US)
  Receive Date: 20150914
  Receipt Date: 20150914
  Transmission Date: 20151125
  Serious: No
  Sender: FDA-Public Use
  Company Number: US-PFIZER INC-2015293845

PATIENT
  Age: 40 Year
  Sex: Female

DRUGS (26)
  1. TORADOL [Concomitant]
     Active Substance: KETOROLAC TROMETHAMINE
     Indication: MIGRAINE
     Dosage: 24 ML, UNK (MAX OF 3 DOSES PER WEEK)
     Dates: start: 20150323
  2. VITAMIN D2 [Concomitant]
     Active Substance: ERGOCALCIFEROL
     Dosage: UNK UNK, WEEKLY
     Route: 048
     Dates: start: 20150302
  3. ULTRAM [Concomitant]
     Active Substance: TRAMADOL HYDROCHLORIDE
     Indication: HEADACHE
     Dosage: 50 MG, UNK (NO MORE THAN 3 TIMES PER WEEK )
     Route: 048
     Dates: start: 20150727
  4. CYMBALTA [Concomitant]
     Active Substance: DULOXETINE HYDROCHLORIDE
     Dosage: 60 MG, 2X/DAY
     Route: 048
     Dates: start: 20130722
  5. ABILIFY [Concomitant]
     Active Substance: ARIPIPRAZOLE
     Dosage: 5 MG, DAILY (1 TAB BY MOUTH ONCE DAILY)
     Route: 048
     Dates: start: 20130220
  6. LYRICA [Suspect]
     Active Substance: PREGABALIN
     Dosage: 300 MG, 3X/DAY
     Route: 048
     Dates: start: 20150821
  7. ELAVIL [Concomitant]
     Active Substance: AMITRIPTYLINE HYDROCHLORIDE
     Dosage: 75 MG, 1X/DAY (1 TAB BY MOUTH NIGHTLY )
     Route: 048
     Dates: start: 20150806
  8. ROXICODONE [Concomitant]
     Active Substance: OXYCODONE HYDROCHLORIDE
     Indication: PAIN
     Dosage: 5 MG, AS NEEDED (1 TAB BY MOUTH ONCE DAILY AS NEEDED)
     Route: 048
     Dates: start: 20150803
  9. PAMELOR [Concomitant]
     Active Substance: NORTRIPTYLINE HYDROCHLORIDE
     Dosage: 25 MG, 3X/DAY (3 CAPSULES BY MOUTH AT BEDTIME)
     Route: 048
     Dates: start: 20150429
  10. PROVENTIL [Concomitant]
     Active Substance: ALBUTEROL
     Indication: WHEEZING
  11. VENTOLIN [Concomitant]
     Active Substance: ALBUTEROL SULFATE
     Indication: DYSPNOEA
     Dosage: (EVERY 4 (FOUR) HOURS AS NEEDED ), AS NEEDED
     Route: 045
     Dates: start: 20150123
  12. VITAMIN B12 [Concomitant]
     Active Substance: CYANOCOBALAMIN
     Dosage: (1 CC 1M ), MONTHLY
     Dates: start: 20150227
  13. PROVENTIL [Concomitant]
     Active Substance: ALBUTEROL
     Indication: DYSPNOEA
     Dosage: (EVERY 4 (FOUR) HOURS AS NEEDED ) AS NEEDED
     Route: 045
     Dates: start: 20150123
  14. ATIVAN [Concomitant]
     Active Substance: LORAZEPAM
     Indication: ANXIETY
     Dosage: 1 MG, AS NEEDED (NIGHTLY AT BEDTIME )
     Route: 048
     Dates: start: 20141226
  15. VIVELLE-DOT [Concomitant]
     Active Substance: ESTRADIOL
     Dosage: (1 PATCH ONTO THE SKIN ) 2X/WEEK
     Route: 062
     Dates: start: 20141229
  16. PROTONIX [Concomitant]
     Active Substance: PANTOPRAZOLE SODIUM
     Dosage: 40 MG, 1X/DAY (1 TABLET BY MOUTH EVERY MORNING)
     Dates: start: 20141031
  17. ZOFRAN [Concomitant]
     Active Substance: ONDANSETRON HYDROCHLORIDE
     Indication: NAUSEA
     Dosage: 4 MG, AS NEEDED (3 (THREE) TIMES DAILY AS NEEDED )
     Route: 048
     Dates: start: 20150727
  18. PROAIR HFA [Concomitant]
     Active Substance: ALBUTEROL SULFATE
     Indication: WHEEZING
  19. VISTARILC [Concomitant]
     Indication: PRURITUS
     Dosage: 50 MG, AS NEEDED (MOUTH 3 (THREE) TIMES DAILY AS NEEDED )
     Route: 048
     Dates: start: 20130409
  20. NEURONTIN [Concomitant]
     Active Substance: GABAPENTIN
     Dosage: 100 MG, 3X/DAY
     Route: 048
     Dates: start: 20150821
  21. XYLOCAINE [Concomitant]
     Active Substance: LIDOCAINE HYDROCHLORIDE
     Indication: PAIN
     Dosage: 5 ML, AS NEEDED (3-6 TIMES PER DAY AS NEEDED)
     Route: 048
     Dates: start: 20150116
  22. ZANAFLEX [Concomitant]
     Active Substance: TIZANIDINE HYDROCHLORIDE
     Indication: MUSCLE SPASMS
     Dosage: 4 MG, AS NEEDED (3 (THREE) TIMES A DAY AS NEEDED )
     Route: 048
     Dates: start: 20150818
  23. VENTOLIN [Concomitant]
     Active Substance: ALBUTEROL SULFATE
     Indication: WHEEZING
  24. PROAIR HFA [Concomitant]
     Active Substance: ALBUTEROL SULFATE
     Indication: DYSPNOEA
     Dosage: (EVERY 4 (FOUR) HOURS AS NEEDED), AS NEEDED
     Route: 045
     Dates: start: 20150123
  25. BENTYL [Concomitant]
     Active Substance: DICYCLOMINE HYDROCHLORIDE
     Dosage: 10 MG, 4X/DAY (4 (FOUR) TIMES DAILY BEFORE MEALS AND NIGHTLY)
     Route: 048
     Dates: start: 20141226
  26. TOPAMAX [Concomitant]
     Active Substance: TOPIRAMATE
     Dosage: 100 MG, 3X/DAY (1 TAB BY MOUTH 3 (THREE) TIMES DAILY)
     Route: 048
     Dates: start: 20130627

REACTIONS (1)
  - Tremor [Unknown]
